FAERS Safety Report 22132572 (Version 1)
Quarter: 2023Q1

REPORT INFORMATION
  Report Type: Spontaneous
  Country: US (occurrence: US)
  Receive Date: 20230323
  Receipt Date: 20230323
  Transmission Date: 20230418
  Serious: Yes (Hospitalization)
  Sender: FDA-Public Use
  Company Number: US-BRISTOL-MYERS SQUIBB COMPANY-2023-039151

PATIENT
  Age: 75 Year
  Sex: Male

DRUGS (1)
  1. POMALYST [Suspect]
     Active Substance: POMALIDOMIDE
     Indication: Plasma cell myeloma
     Dosage: 1QD X 14 DAYS EVERY 28 DAY CYCLE. ON HOLD WITHIN LAST MONTH
     Route: 048
     Dates: start: 20220615, end: 202302

REACTIONS (2)
  - Retinal disorder [Recovering/Resolving]
  - Off label use [Unknown]
